FAERS Safety Report 20799460 (Version 5)
Quarter: 2022Q4

REPORT INFORMATION
  Report Type: Spontaneous
  Country: US (occurrence: US)
  Receive Date: 20220508
  Receipt Date: 20221212
  Transmission Date: 20230113
  Serious: No
  Sender: FDA-Public Use
  Company Number: US-Blueprint Medicines Corporation-70

PATIENT
  Age: 44 Year
  Sex: Male

DRUGS (3)
  1. AYVAKIT [Suspect]
     Active Substance: AVAPRITINIB
     Indication: Gastrointestinal stromal tumour
     Route: 048
     Dates: start: 20201010
  2. AYVAKIT [Suspect]
     Active Substance: AVAPRITINIB
     Indication: Gastrointestinal stromal tumour
     Route: 065
     Dates: start: 20201010
  3. AYVAKIT [Suspect]
     Active Substance: AVAPRITINIB
     Route: 048
     Dates: start: 20201010

REACTIONS (10)
  - Adverse drug reaction [Recovered/Resolved]
  - Sensitive skin [Recovered/Resolved]
  - Food intolerance [Recovering/Resolving]
  - Hordeolum [Not Recovered/Not Resolved]
  - Temperature intolerance [Unknown]
  - Episcleritis [Not Recovered/Not Resolved]
  - Blood bilirubin increased [Unknown]
  - Lacrimation increased [Recovered/Resolved]
  - Abdominal discomfort [Not Recovered/Not Resolved]
  - Product dose omission in error [Unknown]

NARRATIVE: CASE EVENT DATE: 20201024
